FAERS Safety Report 20658316 (Version 1)
Quarter: 2022Q1

REPORT INFORMATION
  Report Type: Spontaneous
  Country: US (occurrence: None)
  Receive Date: 20220331
  Receipt Date: 20220331
  Transmission Date: 20220423
  Serious: No
  Sender: FDA-Public Use
  Company Number: US-IBSA PHARMA INC.-2021-IBS-01815

PATIENT

DRUGS (1)
  1. FLECTOR [Suspect]
     Active Substance: DICLOFENAC EPOLAMINE
     Indication: Product used for unknown indication

REACTIONS (5)
  - Chills [Unknown]
  - Drug hypersensitivity [Unknown]
  - Pruritus [Unknown]
  - Peripheral swelling [Unknown]
  - Joint swelling [Unknown]
